FAERS Safety Report 7236991-3 (Version None)
Quarter: 2011Q1

REPORT INFORMATION
  Report Type: 
  Country: None (occurrence: None)
  Receive Date: 20110121
  Receipt Date: 20110112
  Transmission Date: 20110831
  Serious: No
  Sender: FDA-Public Use
  Company Number: US-BIOGENIDEC-2010BI008756

PATIENT
  Age: 40 Year
  Sex: Female

DRUGS (1)
  1. TYSABRI [Suspect]
     Indication: MULTIPLE SCLEROSIS
     Route: 042
     Dates: start: 20071128, end: 20101202

REACTIONS (9)
  - SENSATION OF HEAVINESS [None]
  - PARAESTHESIA [None]
  - FATIGUE [None]
  - MULTIPLE SCLEROSIS RELAPSE [None]
  - SPEECH DISORDER [None]
  - HEADACHE [None]
  - MUSCULAR WEAKNESS [None]
  - HYPOAESTHESIA [None]
  - DIZZINESS [None]
